FAERS Safety Report 4262231-3 (Version None)
Quarter: 2004Q1

REPORT INFORMATION
  Report Type: 
  Country: None (occurrence: None)
  Receive Date: 20040102
  Receipt Date: 20031205
  Transmission Date: 20041129
  Serious: Yes (Hospitalization)
  Sender: FDA-Public Use
  Company Number: PHBS2003JP13783

PATIENT
  Age: 59 Year
  Sex: Female

DRUGS (3)
  1. VOLTAREN [Suspect]
     Indication: ANTIPYRESIS
     Dosage: 50 MG/DAY
     Route: 054
     Dates: start: 20031201, end: 20031201
  2. IOPAMIDOL [Suspect]
     Indication: ANGIOGRAM PULMONARY
     Dosage: 300 MG/DAY
     Dates: start: 20031201, end: 20031201
  3. GLYBURIDE [Concomitant]
     Indication: DIABETES MELLITUS
     Route: 048

REACTIONS (5)
  - CONVULSION [None]
  - DRUG HYPERSENSITIVITY [None]
  - HYPOXIA [None]
  - LOSS OF CONSCIOUSNESS [None]
  - SHOCK [None]
